FAERS Safety Report 5990471-1 (Version None)
Quarter: 2008Q4

REPORT INFORMATION
  Report Type: 
  Country: None (occurrence: None)
  Receive Date: 20081202
  Receipt Date: 20080428
  Transmission Date: 20090506
  Serious: Yes (Hospitalization)
  Sender: FDA-Public Use
  Company Number: WAES 0804USA05998

PATIENT
  Age: 74 Year
  Sex: Female

DRUGS (1)
  1. FOSAMAX [Suspect]
     Indication: OSTEOPOROSIS
     Dosage: PO
     Route: 048
     Dates: start: 20050101, end: 20060101

REACTIONS (1)
  - PAIN IN JAW [None]
